FAERS Safety Report 5086161-2 (Version None)
Quarter: 2006Q3

REPORT INFORMATION
  Report Type: 
  Country: None (occurrence: None)
  Receive Date: 20060818
  Receipt Date: 20060807
  Transmission Date: 20061208
  Serious: Yes (Hospitalization)
  Sender: FDA-Public Use
  Company Number: 2006096842

PATIENT
  Age: 50 Year
  Sex: Male

DRUGS (5)
  1. XANAX [Suspect]
     Indication: DRUG USE FOR UNKNOWN INDICATION
     Dosage: 1 MG (0.5 MG, UNKNOWN); ORAL
     Route: 048
     Dates: start: 19970101
  2. LODOZ                             (BISOPROLOL FUMARATE, HYDROCHLOROTHI [Suspect]
     Indication: DRUG USE FOR UNKNOWN INDICATION
     Dosage: 1 DOSE FORM (UNKNOWN), ORAL
     Route: 048
  3. TRILEPTAL [Suspect]
     Indication: DRUG USE FOR UNKNOWN INDICATION
     Dosage: 1200 MG (300 MG, 4 IN 1 D) ORAL
     Route: 048
  4. DEPAKENE [Suspect]
     Indication: DRUG USE FOR UNKNOWN INDICATION
     Dosage: 1 GRAM (500 MG, UNKNOWN) ORAL
     Route: 048
     Dates: start: 19920101
  5. SABRIL [Suspect]
     Indication: DRUG USE FOR UNKNOWN INDICATION
     Dosage: 2 GRAM (1 GRAM, 2 IN 1 D) ORAL
     Route: 048
     Dates: start: 19980101

REACTIONS (5)
  - CONDITION AGGRAVATED [None]
  - EPILEPSY [None]
  - FACIAL PALSY [None]
  - HEADACHE [None]
  - HYPONATRAEMIA [None]
